FAERS Safety Report 4860760-2 (Version None)
Quarter: 2005Q4

REPORT INFORMATION
  Report Type: 
  Country: None (occurrence: None)
  Receive Date: 20051216
  Receipt Date: 20051201
  Transmission Date: 20060501
  Serious: Yes (Hospitalization)
  Sender: FDA-Public Use
  Company Number: 13005

PATIENT
  Age: 56 Year
  Sex: Female
  Weight: 105 kg

DRUGS (8)
  1. CARBOPLATIN [Suspect]
     Indication: NEOPLASM MALIGNANT
     Dosage: 600 MG DAILY IV
     Route: 042
     Dates: start: 20050914
  2. DEXAMETHASONE [Suspect]
     Indication: NAUSEA
     Dosage: 8 MG DAILY IV
     Route: 042
     Dates: start: 20050914
  3. DEXAMETHASONE [Suspect]
     Indication: VOMITING
     Dosage: 8 MG DAILY IV
     Route: 042
     Dates: start: 20050914
  4. MAXOLON [Suspect]
     Indication: NAUSEA
     Dosage: 10 MG DAILY IV
     Route: 042
     Dates: start: 20050914
  5. MAXOLON [Suspect]
     Indication: VOMITING
     Dosage: 10 MG DAILY IV
     Route: 042
     Dates: start: 20050914
  6. ANZEMET [Suspect]
     Indication: NAUSEA
     Dosage: 200 MG DAILY PO
     Route: 048
     Dates: start: 20050914
  7. ANZEMET [Suspect]
     Indication: VOMITING
     Dosage: 200 MG DAILY PO
     Route: 048
     Dates: start: 20050914
  8. TAXOTERE [Suspect]
     Indication: NEOPLASM MALIGNANT
     Dosage: 125 MG DAILY IV
     Route: 042
     Dates: start: 20050914

REACTIONS (7)
  - BRONCHOSPASM [None]
  - CHEST DISCOMFORT [None]
  - FLUSHING [None]
  - HYPERHIDROSIS [None]
  - HYPERSENSITIVITY [None]
  - NAUSEA [None]
  - VOMITING [None]
